FAERS Safety Report 8226893-8 (Version None)
Quarter: 2012Q1

REPORT INFORMATION
  Report Type: 
  Country: None (occurrence: None)
  Receive Date: 20120322
  Receipt Date: 20120313
  Transmission Date: 20120608
  Serious: Yes (Hospitalization)
  Sender: FDA-Public Use
  Company Number: US-BAYER-2011-063223

PATIENT
  Age: 19 Year
  Sex: Female
  Weight: 60.771 kg

DRUGS (2)
  1. NEXIUM [Concomitant]
     Indication: DYSPEPSIA
  2. YAZ [Suspect]
     Indication: CONTRACEPTION
     Dosage: UNK
     Dates: start: 20080101, end: 20090101

REACTIONS (5)
  - CHOLECYSTITIS CHRONIC [None]
  - DYSPEPSIA [None]
  - INJURY [None]
  - PAIN [None]
  - GALLBLADDER DISORDER [None]
